FAERS Safety Report 9718005 (Version 1)
Quarter: 2013Q4

REPORT INFORMATION
  Report Type: Spontaneous
  Country: US (occurrence: US)
  Receive Date: 20131127
  Receipt Date: 20131127
  Transmission Date: 20140711
  Serious: Yes (Other)
  Sender: FDA-Public Use
  Company Number: US-JNJFOC-20131112860

PATIENT
  Sex: 0

DRUGS (1)
  1. INFLIXIMAB, RECOMBINANT [Suspect]
     Indication: CROHN^S DISEASE
     Route: 042

REACTIONS (6)
  - Intestinal operation [Unknown]
  - Iatrogenic injury [Unknown]
  - Pancreatitis [Unknown]
  - Drug eruption [Unknown]
  - Infusion related reaction [Unknown]
  - Therapeutic response decreased [Unknown]
